FAERS Safety Report 7440823-8 (Version None)
Quarter: 2011Q2

REPORT INFORMATION
  Report Type: 
  Country: None (occurrence: None)
  Receive Date: 20110427
  Receipt Date: 20110422
  Transmission Date: 20111010
  Serious: Yes (Hospitalization)
  Sender: FDA-Public Use
  Company Number: US-ABBOTT-11P-163-0721458-00

PATIENT
  Sex: Female

DRUGS (9)
  1. HYDROCHLOROTHIAZIDE [Concomitant]
     Indication: PRODUCT USED FOR UNKNOWN INDICATION
  2. CITALOPRAM [Concomitant]
     Indication: PRODUCT USED FOR UNKNOWN INDICATION
  3. ASPIRIN [Concomitant]
     Indication: PRODUCT USED FOR UNKNOWN INDICATION
  4. PREDNISONE [Concomitant]
     Indication: PRODUCT USED FOR UNKNOWN INDICATION
     Dosage: TAPER DOSE
  5. LISINOPRIL [Concomitant]
     Indication: HYPERTENSION
  6. BIAXIN [Suspect]
     Indication: SINUSITIS
     Dates: start: 20110101, end: 20110201
  7. ATENOLOL [Concomitant]
     Indication: HYPERTENSION
  8. AMLODIPINE [Concomitant]
     Indication: HYPERTENSION
  9. NAPROXEN (ALEVE) [Concomitant]
     Indication: PRODUCT USED FOR UNKNOWN INDICATION

REACTIONS (8)
  - VOMITING [None]
  - ABDOMINAL PAIN UPPER [None]
  - HYPOTENSION [None]
  - DEAFNESS UNILATERAL [None]
  - BACK PAIN [None]
  - PANCREATITIS [None]
  - VERTIGO [None]
  - ELECTROCARDIOGRAM QT PROLONGED [None]
